FAERS Safety Report 15628349 (Version 1)
Quarter: 2018Q4

REPORT INFORMATION
  Report Type: Spontaneous
  Country: US (occurrence: US)
  Receive Date: 20181116
  Receipt Date: 20181116
  Transmission Date: 20190205
  Serious: No
  Sender: FDA-Public Use
  Company Number: US-PFIZER INC-2018470218

PATIENT

DRUGS (5)
  1. DOCETAXEL ACCORD [Suspect]
     Active Substance: DOCETAXEL
     Dosage: UNK
     Dates: start: 201106, end: 20110713
  2. DOCETAXEL. [Suspect]
     Active Substance: DOCETAXEL
     Dosage: UNK
     Dates: start: 201106, end: 20110713
  3. DOCETAXEL SUN [Suspect]
     Active Substance: DOCETAXEL
     Dosage: UNK
     Dates: start: 201106, end: 20110713
  4. TAXOTERE [Suspect]
     Active Substance: DOCETAXEL
     Dosage: UNK
     Dates: start: 201106, end: 20110713
  5. DOCETAXEL. [Suspect]
     Active Substance: DOCETAXEL
     Dosage: UNK
     Dates: start: 201106, end: 20110713

REACTIONS (1)
  - Alopecia [Not Recovered/Not Resolved]
